FAERS Safety Report 4282424-9 (Version None)
Quarter: 2004Q1

REPORT INFORMATION
  Report Type: 
  Country: None (occurrence: None)
  Receive Date: 20040112
  Receipt Date: 20040102
  Transmission Date: 20041129
  Serious: No
  Sender: FDA-Public Use
  Company Number: PHEH2003US10594

PATIENT
  Age: 60 Year
  Sex: Male
  Weight: 71.7 kg

DRUGS (6)
  1. ELIDEL [Suspect]
     Indication: DERMATITIS
     Dosage: TOPICAL
     Route: 061
     Dates: start: 20030811, end: 20031007
  2. NIACIN [Concomitant]
  3. VIOXX [Concomitant]
  4. LOPID [Concomitant]
  5. HYDROCHLOROTHIAZIDE [Concomitant]
  6. LISINOPRIL [Concomitant]

REACTIONS (6)
  - APPLICATION SITE BURNING [None]
  - APPLICATION SITE DRYNESS [None]
  - APPLICATION SITE IRRITATION [None]
  - APPLICATION SITE PRURITUS [None]
  - CONDITION AGGRAVATED [None]
  - RASH SCALY [None]
